FAERS Safety Report 9405991 (Version 1)
Quarter: 2013Q3

REPORT INFORMATION
  Report Type: Spontaneous
  Country: RO (occurrence: RO)
  Receive Date: 20130717
  Receipt Date: 20130717
  Transmission Date: 20140515
  Serious: Yes (Other)
  Sender: FDA-Public Use
  Company Number: RO-ACTAVIS-2013-12159

PATIENT
  Age: 61 Year
  Sex: Male

DRUGS (12)
  1. FENTANYL (UNKNOWN) [Suspect]
     Indication: MAINTENANCE OF ANAESTHESIA
     Dosage: 0.5 MCG/KG
     Route: 042
     Dates: start: 20111110
  2. FENTANYL (UNKNOWN) [Suspect]
     Indication: INDUCTION OF ANAESTHESIA
     Dosage: 2 MCG/KG
     Route: 065
     Dates: start: 20111110
  3. FENTANYL (UNKNOWN) [Suspect]
     Indication: SEDATIVE THERAPY
     Dosage: MAXIMUM 100 MCG
     Route: 042
     Dates: start: 20111110
  4. MIDAZOLAM (UNKNOWN) [Suspect]
     Indication: SEDATIVE THERAPY
     Dosage: MAXIMUM 2 MG
     Route: 065
     Dates: start: 20111110
  5. LIDOCAINE HYDROCHLORIDE (WATSON LABORATORIES) [Suspect]
     Indication: EPIDURAL ANAESTHESIA
     Dosage: 1%
     Route: 058
     Dates: start: 20111110
  6. SUXAMETHONIUM (UNKNOWN) [Suspect]
     Indication: INDUCTION OF ANAESTHESIA
     Dosage: 1 MG/KG
     Route: 065
     Dates: start: 20111110
  7. ATRACURIUM BESYLATE (WATSON LABORATORIES) [Suspect]
     Indication: MAINTENANCE OF ANAESTHESIA
     Dosage: 0.5 MG/KG
     Route: 065
     Dates: start: 20111110
  8. ISOFLURANE (UNKNOWN) [Suspect]
     Indication: MAINTENANCE OF ANAESTHESIA
     Dosage: 2.5/3% END-TIDAL
     Route: 055
     Dates: start: 20111110
  9. THIOPENTAL [Suspect]
     Indication: INDUCTION OF ANAESTHESIA
     Dosage: 2-3 MG/KG
     Route: 065
     Dates: start: 20111110
  10. NAROPIN [Suspect]
     Indication: EPIDURAL ANAESTHESIA
     Dosage: 2-3 ML/HR, 0.75%, THROUGH CATHETER
     Route: 008
     Dates: start: 20111110
  11. RINGER^S LACTATE [Suspect]
     Indication: PRODUCT USED FOR UNKNOWN INDICATION
     Dosage: 10 MG/KG
     Route: 040
     Dates: start: 20111110
  12. OXYGEN [Suspect]
     Indication: MAINTENANCE OF ANAESTHESIA
     Dosage: 50% INSPIRED
     Route: 055
     Dates: start: 20111110

REACTIONS (2)
  - Hypotension [Unknown]
  - Bradycardia [Unknown]
